FAERS Safety Report 9429037 (Version 1)
Quarter: 2013Q3

REPORT INFORMATION
  Report Type: Spontaneous
  Country: DE (occurrence: DE)
  Receive Date: 20130730
  Receipt Date: 20130730
  Transmission Date: 20140515
  Serious: Yes (Hospitalization)
  Sender: FDA-Public Use
  Company Number: US-ASTRAZENECA-2013SE57071

PATIENT
  Age: 81 Year
  Sex: Male

DRUGS (7)
  1. PROPOFOL [Suspect]
     Route: 042
  2. PLACEBO [Suspect]
     Indication: TYPE 2 DIABETES MELLITUS
     Route: 048
     Dates: start: 20110120, end: 20120508
  3. PLACEBO [Suspect]
     Indication: TYPE 2 DIABETES MELLITUS
     Route: 048
     Dates: start: 20120723
  4. LANTUS [Suspect]
     Indication: TYPE 2 DIABETES MELLITUS
     Route: 065
     Dates: end: 20110131
  5. LANTUS [Suspect]
     Indication: TYPE 2 DIABETES MELLITUS
     Route: 065
     Dates: start: 20110201
  6. INSULIN GLULISINE [Suspect]
     Indication: TYPE 2 DIABETES MELLITUS
     Route: 065
     Dates: start: 20120427
  7. ASPIRIN [Concomitant]

REACTIONS (2)
  - Postoperative renal failure [Recovered/Resolved]
  - Aortic aneurysm [Recovered/Resolved]
